FAERS Safety Report 9083169 (Version 1)
Quarter: 2013Q1

REPORT INFORMATION
  Report Type: Report from Study
  Country: US (occurrence: US)
  Receive Date: 20130130
  Receipt Date: 20130130
  Transmission Date: 20140127
  Serious: No
  Sender: FDA-Public Use
  Company Number: US-ABBOTT-12P-163-0955258-00

PATIENT
  Age: 74 Year
  Sex: Female

DRUGS (8)
  1. HUMIRA 40 MG/0.8 ML PEN [Suspect]
     Indication: RHEUMATOID ARTHRITIS
  2. METHOTREXATE [Concomitant]
     Indication: RHEUMATOID ARTHRITIS
     Route: 048
  3. METFORMIN [Concomitant]
     Indication: DIABETES MELLITUS
     Route: 048
  4. SIMVASTATIN [Concomitant]
     Indication: BLOOD CHOLESTEROL INCREASED
     Route: 048
  5. METOPROLOL [Concomitant]
     Indication: CARDIAC DISORDER
     Route: 048
  6. LISINOPRIL [Concomitant]
     Indication: CARDIAC DISORDER
     Route: 048
  7. BABY ASPIRIN [Concomitant]
     Indication: CARDIAC DISORDER
     Route: 048
  8. GLIMEPIRIDE [Concomitant]
     Indication: DIABETES MELLITUS
     Route: 048

REACTIONS (7)
  - Incorrect dose administered [Recovered/Resolved]
  - Device malfunction [Recovered/Resolved]
  - Drug dose omission [Unknown]
  - Device malfunction [Unknown]
  - Injection site pain [Recovered/Resolved]
  - Injection site pain [Unknown]
  - Arthralgia [Unknown]
